FAERS Safety Report 12723407 (Version 2)
Quarter: 2021Q1

REPORT INFORMATION
  Report Type: Spontaneous
  Country: CA (occurrence: CA)
  Receive Date: 20160908
  Receipt Date: 20210118
  Transmission Date: 20210419
  Serious: Yes (Hospitalization)
  Sender: FDA-Public Use
  Company Number: CA-ROCHE-1827187

PATIENT
  Age: 54 Year
  Sex: Female

DRUGS (10)
  1. ACETAMINOPHEN;CODEINE PHOSPHATE [Suspect]
     Active Substance: ACETAMINOPHEN\CODEINE PHOSPHATE
     Indication: BACK PAIN
     Route: 048
  2. GABAPENTIN. [Suspect]
     Active Substance: GABAPENTIN
     Indication: FIBROMYALGIA
     Route: 048
  3. TEMAZEPAM. [Suspect]
     Active Substance: TEMAZEPAM
     Indication: INSOMNIA
     Route: 048
  4. CLONAZEPAM. [Suspect]
     Active Substance: CLONAZEPAM
     Indication: DEPRESSION
     Route: 048
  5. FERROUS SULFATE. [Suspect]
     Active Substance: FERROUS SULFATE
     Indication: ANAEMIA
     Route: 065
  6. DOMPERIDONE [Suspect]
     Active Substance: DOMPERIDONE
     Indication: IRRITABLE BOWEL SYNDROME
     Route: 048
  7. WELLBUTRIN [Suspect]
     Active Substance: BUPROPION HYDROCHLORIDE
     Indication: DEPRESSION
     Route: 048
  8. ESCITALOPRAM [Suspect]
     Active Substance: ESCITALOPRAM OXALATE
     Indication: DEPRESSION
     Route: 048
  9. GABAPENTIN. [Suspect]
     Active Substance: GABAPENTIN
     Route: 048
  10. VITALUX [Suspect]
     Active Substance: MINERALS\VITAMINS
     Indication: MACULAR DEGENERATION
     Route: 065

REACTIONS (4)
  - Condition aggravated [Recovering/Resolving]
  - Dysphagia [Recovering/Resolving]
  - Dehydration [Recovering/Resolving]
  - Mental disorder [Recovering/Resolving]
